FAERS Safety Report 8971722 (Version 1)
Quarter: 2012Q4

REPORT INFORMATION
  Report Type: 
  Country: BG (occurrence: BG)
  Receive Date: 20121217
  Receipt Date: 20121217
  Transmission Date: 20130627
  Serious: Yes (Death, Hospitalization)
  Sender: FDA-Public Use
  Company Number: BG-ASTRAZENECA-2012SE92823

PATIENT
  Age: 31046 Day
  Sex: Male

DRUGS (6)
  1. BRILIQUE [Suspect]
     Indication: ACUTE CORONARY SYNDROME
     Route: 048
  2. AMARYL [Concomitant]
  3. DILATREND [Concomitant]
  4. EXFORGE [Concomitant]
  5. SPIRONOLACTONE [Concomitant]
  6. ASPIRIN PROTECT [Concomitant]

REACTIONS (2)
  - Haemorrhagic stroke [Fatal]
  - Gastric ulcer [Fatal]
